FAERS Safety Report 10593706 (Version 2)
Quarter: 2015Q1

REPORT INFORMATION
  Report Type: Spontaneous
  Country: DE (occurrence: DE)
  Receive Date: 20141119
  Receipt Date: 20150224
  Transmission Date: 20150720
  Serious: Yes (Other)
  Sender: FDA-Public Use
  Company Number: PHHY2014DE150667

PATIENT
  Sex: Female

DRUGS (2)
  1. L-THYROXIN [Concomitant]
     Active Substance: LEVOTHYROXINE SODIUM
     Indication: HYPOTHYROIDISM
     Dosage: 100 UG, (SINCE YEARS)
     Route: 048
  2. RASILEZ HCT [Suspect]
     Active Substance: ALISKIREN\HYDROCHLOROTHIAZIDE
     Indication: HYPERTENSION
     Dosage: 1 DF, UNK (ALIS 150 MG / HYDR12.5 MG)
     Route: 048
     Dates: start: 201111, end: 201406

REACTIONS (1)
  - Leukoplakia [Not Recovered/Not Resolved]

NARRATIVE: CASE EVENT DATE: 201407
